FAERS Safety Report 4758903-4 (Version None)
Quarter: 2005Q3

REPORT INFORMATION
  Report Type: 
  Country: None (occurrence: None)
  Receive Date: 20050831
  Receipt Date: 20050816
  Transmission Date: 20060218
  Serious: Yes (Life-Threatening, Hospitalization)
  Sender: FDA-Public Use
  Company Number: 2005S1006623

PATIENT
  Age: 72 Year
  Sex: Male
  Weight: 65.7716 kg

DRUGS (3)
  1. FENTANYL [Suspect]
     Indication: BACK PAIN
     Dosage: 75 MCG/HR; X1; TDER
     Route: 062
     Dates: start: 20050717, end: 20050718
  2. PARACETAMOL /OXYCODONE HYDROCHLORIDE [Concomitant]
  3. CITALOPRAM HYDROBROMIDE [Concomitant]

REACTIONS (8)
  - CHILLS [None]
  - DELIRIUM [None]
  - DRUG WITHDRAWAL SYNDROME [None]
  - INCOHERENT [None]
  - LETHARGY [None]
  - OVERDOSE [None]
  - PHARMACEUTICAL PRODUCT COMPLAINT [None]
  - TREMOR [None]
